FAERS Safety Report 7448954-3 (Version None)
Quarter: 2011Q2

REPORT INFORMATION
  Report Type: 
  Country: None (occurrence: None)
  Receive Date: 20110429
  Receipt Date: 20110421
  Transmission Date: 20111010
  Serious: Yes (Life-Threatening)
  Sender: FDA-Public Use
  Company Number: FR-GENENTECH-317400

PATIENT
  Age: 41 Year
  Sex: Male

DRUGS (6)
  1. PRIMPERAN (FRANCE) [Concomitant]
     Indication: PRODUCT USED FOR UNKNOWN INDICATION
     Dosage: UNK
  2. ZOPHREN [Suspect]
     Indication: PRODUCT USED FOR UNKNOWN INDICATION
     Dosage: UNK
     Route: 042
     Dates: start: 20110322, end: 20110324
  3. DEXAMETHASONE [Concomitant]
     Indication: PRODUCT USED FOR UNKNOWN INDICATION
     Dosage: UNK
  4. MABTHERA [Suspect]
     Indication: LYMPHOMA
     Dosage: UNK
     Route: 042
     Dates: start: 20110322, end: 20110322
  5. ARACYTINE [Suspect]
     Indication: LYMPHOMA
     Dosage: 2000 MG/M2, BID
     Route: 042
     Dates: start: 20110323, end: 20110323
  6. CISPLATIN [Suspect]
     Indication: LYMPHOMA
     Dosage: UNK
     Route: 042
     Dates: start: 20110322, end: 20110323

REACTIONS (4)
  - HYPOKALAEMIA [None]
  - CARDIOGENIC SHOCK [None]
  - VENTRICULAR TACHYCARDIA [None]
  - RENAL FAILURE [None]
